FAERS Safety Report 8671725 (Version 3)
Quarter: 2015Q2

REPORT INFORMATION
  Report Type: Report from Study
  Country: US (occurrence: US)
  Receive Date: 20120718
  Receipt Date: 20150626
  Transmission Date: 20150821
  Serious: Yes (Death)
  Sender: FDA-Public Use
  Company Number: US-ROCHE-1087506

PATIENT
  Sex: Female

DRUGS (8)
  1. TETRACAINE [Concomitant]
     Active Substance: TETRACAINE\TETRACAINE HYDROCHLORIDE
     Route: 061
  2. LUCENTIS [Suspect]
     Active Substance: RANIBIZUMAB
     Indication: RETINAL OEDEMA
  3. BETADINE [Concomitant]
     Active Substance: POVIDONE-IODINE
     Route: 065
  4. LIDOCAINE. [Concomitant]
     Active Substance: LIDOCAINE
  5. VIGAMOX [Concomitant]
     Active Substance: MOXIFLOXACIN HYDROCHLORIDE
  6. GENTAMICIN. [Concomitant]
     Active Substance: GENTAMICIN
     Route: 061
  7. BACITRACIN. [Concomitant]
     Active Substance: BACITRACIN
  8. LUCENTIS [Suspect]
     Active Substance: RANIBIZUMAB
     Indication: DIABETIC RETINOPATHY
     Route: 050
     Dates: start: 20090212

REACTIONS (2)
  - Off label use [Unknown]
  - Death [Fatal]
